FAERS Safety Report 6122052-3 (Version None)
Quarter: 2009Q1

REPORT INFORMATION
  Report Type: 
  Country: None (occurrence: None)
  Receive Date: 20090316
  Receipt Date: 20090226
  Transmission Date: 20090719
  Serious: Yes (Other)
  Sender: FDA-Public Use
  Company Number: 207366

PATIENT
  Age: 90 Year
  Sex: Male

DRUGS (7)
  1. DOXYCYCLINE [Suspect]
     Indication: LIVER FUNCTION TEST ABNORMAL
     Dosage: (100 MG) ORAL
     Route: 048
     Dates: start: 20090119, end: 20090126
  2. ASPIRIN [Concomitant]
  3. ATROVENT [Concomitant]
  4. SALBUTAMOL [Concomitant]
  5. SERETIDE [Concomitant]
  6. SIMVASTATIN-MEPHA [Concomitant]
  7. SALBUTAMOL [Concomitant]

REACTIONS (1)
  - HEPATIC FUNCTION ABNORMAL [None]
